FAERS Safety Report 4443675-3 (Version None)
Quarter: 2004Q3

REPORT INFORMATION
  Report Type: 
  Country: None (occurrence: None)
  Receive Date: 20040908
  Receipt Date: 20040907
  Transmission Date: 20050211
  Serious: Yes (Hospitalization)
  Sender: FDA-Public Use
  Company Number: FR-GLAXOSMITHKLINE-B0344616A

PATIENT
  Age: 60 Year
  Sex: Female
  Weight: 57 kg

DRUGS (2)
  1. AMOXICILLIN [Suspect]
     Dosage: 3G THREE TIMES PER DAY
     Route: 042
     Dates: start: 20040629, end: 20040705
  2. BACTRIM [Suspect]
     Dosage: 800MG THREE TIMES PER DAY
     Route: 042
     Dates: start: 20040629, end: 20040704

REACTIONS (2)
  - PANCYTOPENIA [None]
  - RASH [None]
